FAERS Safety Report 5479490-1 (Version None)
Quarter: 2007Q3

REPORT INFORMATION
  Report Type: 
  Country: None (occurrence: None)
  Receive Date: 20070913
  Receipt Date: 20070327
  Transmission Date: 20080115
  Serious: Yes (Other)
  Sender: FDA-Public Use
  Company Number: 35685

PATIENT
  Age: 46 Year
  Sex: Female
  Weight: 80.2867 kg

DRUGS (6)
  1. PACLITAXEL [Suspect]
     Indication: BREAST CANCER
     Dosage: 315MG/IV
     Route: 042
     Dates: start: 20070123
  2. HERCEPTIN [Concomitant]
  3. DECADRON [Concomitant]
  4. BENADRYL [Concomitant]
  5. ZANTAC [Concomitant]
  6. ALOXI [Concomitant]

REACTIONS (2)
  - PAIN [None]
  - RASH [None]
